FAERS Safety Report 10756016 (Version 1)
Quarter: 2015Q1

REPORT INFORMATION
  Report Type: Spontaneous
  Country: KR (occurrence: KR)
  Receive Date: 20150202
  Receipt Date: 20150202
  Transmission Date: 20150721
  Serious: Yes (Hospitalization)
  Sender: FDA-Public Use
  Company Number: KR-MYLANLABS-2015M1002478

PATIENT

DRUGS (2)
  1. TOSUFLOXACIN [Interacting]
     Active Substance: TOSUFLOXACIN TOSYLATE
     Indication: DACRYOCYSTITIS
     Dosage: 0.3% EIGHT TIMES DAILY
     Route: 061
  2. PREDNISOLONE. [Suspect]
     Active Substance: PREDNISOLONE
     Dosage: 1% EIGHT TIMES DAILY
     Route: 061

REACTIONS (2)
  - Drug interaction [Recovered/Resolved]
  - Corneal deposits [Recovered/Resolved]
